FAERS Safety Report 9892602 (Version 3)
Quarter: 2014Q1

REPORT INFORMATION
  Report Type: Spontaneous
  Country: DE (occurrence: DE)
  Receive Date: 20140212
  Receipt Date: 20140313
  Transmission Date: 20141002
  Serious: Yes (Hospitalization, Other)
  Sender: FDA-Public Use
  Company Number: PHHY2014DE016448

PATIENT
  Age: 43 Year
  Sex: Female

DRUGS (6)
  1. GILENYA [Suspect]
     Indication: MULTIPLE SCLEROSIS
     Dosage: 0.5 MG, QD
     Route: 048
     Dates: start: 201310, end: 201401
  2. CARBAMAZEPINE [Suspect]
     Indication: CONVULSION
     Dosage: 400 MG, DAILY
     Route: 048
     Dates: start: 201310, end: 20140114
  3. TIZANIDINE [Suspect]
     Indication: MUSCLE SPASTICITY
     Dosage: 4 MG, DAILY
     Route: 048
     Dates: start: 201310, end: 201401
  4. EMSELEX [Concomitant]
     Indication: BLADDER DISORDER
     Dosage: 7.5 MG, DAILY
     Route: 048
     Dates: start: 2010, end: 20140116
  5. FAMPYRA [Concomitant]
     Indication: GAIT DISTURBANCE
     Dosage: 20 MG, DAILY
     Route: 048
     Dates: start: 2011
  6. LYRICA [Concomitant]
     Indication: PAIN
     Dosage: 225 MG, DAILY
     Route: 048

REACTIONS (3)
  - Drug-induced liver injury [Not Recovered/Not Resolved]
  - Gamma-glutamyltransferase increased [Unknown]
  - Alanine aminotransferase increased [Unknown]
